FAERS Safety Report 21560019 (Version 2)
Quarter: 2023Q1

REPORT INFORMATION
  Report Type: Report from Study
  Country: US (occurrence: US)
  Receive Date: 20221107
  Receipt Date: 20230117
  Transmission Date: 20230417
  Serious: No
  Sender: FDA-Public Use
  Company Number: US-ABBVIE-4138582

PATIENT
  Sex: Female

DRUGS (1)
  1. ORILISSA [Suspect]
     Active Substance: ELAGOLIX SODIUM
     Indication: Product used for unknown indication
     Route: 048

REACTIONS (7)
  - Muscle spasms [Not Recovered/Not Resolved]
  - Urticaria [Recovering/Resolving]
  - Influenza [Recovering/Resolving]
  - Rash [Recovering/Resolving]
  - Asthma [Unknown]
  - Haemorrhage [Unknown]
  - Hepatic enzyme increased [Unknown]
